FAERS Safety Report 25703178 (Version 5)
Quarter: 2025Q4

REPORT INFORMATION
  Report Type: Report from Study
  Country: US (occurrence: US)
  Receive Date: 20250820
  Receipt Date: 20251229
  Transmission Date: 20260118
  Serious: Yes (Other)
  Sender: ABBVIE
  Company Number: US-ABBVIE-6419720

PATIENT
  Age: 70 Year
  Sex: Female

DRUGS (3)
  1. VENCLEXTA [Suspect]
     Active Substance: VENETOCLAX
     Indication: Chronic lymphocytic leukaemia
     Dosage: TAKING FOUR 100 MG OF VENCLEXTA ONCE A DAILY.
     Route: 048
     Dates: start: 20250407
  2. VENCLEXTA [Suspect]
     Active Substance: VENETOCLAX
     Indication: Chronic lymphocytic leukaemia
     Dosage: TAKING FOUR 100 MG OF VENCLEXTA ONCE A DAILY.
     Route: 048
     Dates: start: 2025
  3. VENCLEXTA [Suspect]
     Active Substance: VENETOCLAX
     Indication: Chronic lymphocytic leukaemia
     Dosage: TAKING FOUR 100 MG OF VENCLEXTA ONCE A DAILY.
     Route: 048
     Dates: start: 2025, end: 2025

REACTIONS (13)
  - Deafness unilateral [Not Recovered/Not Resolved]
  - Petechiae [Recovered/Resolved]
  - Breast mass [Unknown]
  - Dizziness [Unknown]
  - Fatigue [Unknown]
  - Irritable bowel syndrome [Unknown]
  - Stress [Unknown]
  - Skin discolouration [Recovered/Resolved]
  - Nasopharyngitis [Unknown]
  - Ear swelling [Unknown]
  - White blood cell count decreased [Not Recovered/Not Resolved]
  - Meniere^s disease [Recovered/Resolved]
  - Meniere^s disease [Unknown]

NARRATIVE: CASE EVENT DATE: 20250101
